FAERS Safety Report 8682835 (Version 4)
Quarter: 2013Q4

REPORT INFORMATION
  Report Type: Spontaneous
  Country: US (occurrence: US)
  Receive Date: 20120725
  Receipt Date: 20131231
  Transmission Date: 20140711
  Serious: Yes (Hospitalization)
  Sender: FDA-Public Use
  Company Number: US-ASTRAZENECA-2012SE48266

PATIENT
  Age: 62 Year
  Sex: Female
  Weight: 97.5 kg

DRUGS (19)
  1. NEXIUM [Suspect]
     Indication: GASTROOESOPHAGEAL REFLUX DISEASE
     Route: 048
  2. NEXIUM [Suspect]
     Indication: DYSPEPSIA
     Route: 048
  3. TUMS [Concomitant]
  4. ESTROGEN [Concomitant]
     Indication: HOT FLUSH
     Dosage: DAILY
     Route: 048
  5. ESTROGEN [Concomitant]
     Indication: HYPERHIDROSIS
     Dosage: DAILY
     Route: 048
  6. SINGULAIR [Concomitant]
     Indication: ASTHMA
     Dosage: DAILY
     Route: 048
  7. ADVAIR [Concomitant]
     Indication: ASTHMA
     Dosage: BID
     Route: 055
  8. PROAIR [Concomitant]
     Indication: ASTHMA
     Dosage: PRN
     Route: 055
  9. UNSPECIFIED MEDICATION [Concomitant]
     Indication: HYPERTENSION
     Dosage: DAILY
     Route: 048
  10. UNSPECIFIED MEDICATION [Concomitant]
     Indication: GOUT
     Dosage: DAILY
     Route: 048
  11. UNSPECIFIED MEDICATION [Concomitant]
     Indication: HYPERTENSION
     Dosage: DAILY
     Route: 048
     Dates: start: 2012
  12. UNSPECIFIED MEDICATION [Concomitant]
     Indication: GOUT
     Dosage: DAILY
     Route: 048
     Dates: start: 2012
  13. NEURONTIN [Concomitant]
     Indication: BACK DISORDER
     Route: 048
     Dates: start: 2011
  14. OXYCODONE [Concomitant]
     Indication: BACK PAIN
     Dosage: TID
     Route: 048
     Dates: start: 2011
  15. PAXIL [Concomitant]
     Indication: DEPRESSION
     Dosage: DAILY
     Route: 048
  16. MULTIVITAMIN [Concomitant]
     Indication: HYPOVITAMINOSIS
     Dosage: DAILY
     Route: 048
  17. GLUCOSAMINE CHONDRONTIN [Concomitant]
     Indication: ARTHRITIS
     Dosage: DAILY
     Route: 048
  18. GLUCOSAMINE CHONDRONTIN [Concomitant]
     Indication: GOUT
     Dosage: DAILY
     Route: 048
  19. EYE DROPS [Concomitant]
     Indication: CATARACT OPERATION
     Dosage: TID
     Route: 048
     Dates: start: 201312

REACTIONS (14)
  - Pneumonia [Unknown]
  - Gastrooesophageal reflux disease [Unknown]
  - Arthritis [Unknown]
  - Intervertebral disc disorder [Unknown]
  - Adverse event [Unknown]
  - Pain [Unknown]
  - Cataract [Unknown]
  - Gout [Unknown]
  - Asthma [Unknown]
  - Chronic obstructive pulmonary disease [Unknown]
  - Bronchitis [Unknown]
  - Emphysema [Unknown]
  - Rash [Unknown]
  - Drug dose omission [Unknown]
